FAERS Safety Report 19459366 (Version 1)
Quarter: 2021Q2

REPORT INFORMATION
  Report Type: Report from Study
  Country: JP (occurrence: JP)
  Receive Date: 20210624
  Receipt Date: 20210624
  Transmission Date: 20210717
  Serious: Yes (Hospitalization)
  Sender: FDA-Public Use
  Company Number: JP-JNJFOC-20210502355

PATIENT
  Age: 65 Year
  Sex: Male
  Weight: 64 kg

DRUGS (14)
  1. NEXIUM [Concomitant]
     Active Substance: ESOMEPRAZOLE MAGNESIUM
     Indication: PROPHYLAXIS
     Route: 048
  2. BISOPROLOL [Concomitant]
     Active Substance: BISOPROLOL
     Indication: PROPHYLAXIS
     Route: 048
  3. MAGNESIUM OXIDE. [Concomitant]
     Active Substance: MAGNESIUM OXIDE
     Indication: CONSTIPATION
     Route: 048
     Dates: start: 20201119
  4. DIFFERIN [Concomitant]
     Active Substance: ADAPALENE
     Indication: PARONYCHIA
     Route: 061
     Dates: start: 20210128
  5. LAZERTINIB. [Suspect]
     Active Substance: LAZERTINIB
     Indication: NON-SMALL CELL LUNG CANCER
     Route: 048
     Dates: start: 20200924, end: 20210427
  6. LAZERTINIB. [Suspect]
     Active Substance: LAZERTINIB
     Route: 048
     Dates: start: 20210506
  7. AMIVANTAMAB. [Suspect]
     Active Substance: AMIVANTAMAB
     Indication: NON-SMALL CELL LUNG CANCER
     Dosage: FIRST DOSE RECEIVED OVER TWO DAY (350 MG ON 24?SEP?2020 AND 700 MG ON 25?SEP?2020) THEN FULL DOSE WE
     Route: 042
     Dates: start: 20200924, end: 20210325
  8. ALMETA [Concomitant]
     Active Substance: ALCLOMETASONE DIPROPIONATE
     Indication: DERMATITIS ACNEIFORM
     Route: 061
  9. MYSER [CYCLOSERINE] [Concomitant]
     Active Substance: CYCLOSERINE
     Indication: PARONYCHIA
     Route: 061
     Dates: start: 20210210
  10. BILANOA [Concomitant]
     Active Substance: BILASTINE
     Indication: DRY SKIN
     Route: 048
  11. HEPARINOID [Concomitant]
     Active Substance: CHONDROITIN SULFATE (BOVINE)
     Indication: DRY SKIN
     Route: 061
     Dates: start: 20201008
  12. ASPRIN [Concomitant]
     Active Substance: ASPIRIN
     Indication: PROPHYLAXIS
     Route: 048
  13. CLOPIDOGREL [Concomitant]
     Active Substance: CLOPIDOGREL BISULFATE
     Indication: PROPHYLAXIS
     Route: 048
  14. FUROSEMIDE. [Concomitant]
     Active Substance: FUROSEMIDE
     Indication: PROPHYLAXIS
     Route: 048

REACTIONS (1)
  - Embolism venous [Recovered/Resolved]

NARRATIVE: CASE EVENT DATE: 20210426
